FAERS Safety Report 6374923-0 (Version None)
Quarter: 2009Q3

REPORT INFORMATION
  Report Type: 
  Country: None (occurrence: None)
  Receive Date: 20090924
  Receipt Date: 20090724
  Transmission Date: 20100115
  Serious: No
  Sender: FDA-Public Use
  Company Number: US-ASTRAZENECA-2009UW21348

PATIENT
  Age: 28 Year
  Sex: Female
  Weight: 70.3 kg

DRUGS (5)
  1. SEROQUEL XR [Suspect]
     Indication: ANXIETY
     Route: 048
     Dates: start: 20090710
  2. SEROQUEL XR [Suspect]
     Route: 048
  3. SEROQUEL XR [Suspect]
     Route: 048
  4. TOPROL-XL [Concomitant]
     Indication: ARRHYTHMIA
  5. XANAX [Concomitant]
     Indication: ANXIETY

REACTIONS (1)
  - ANXIETY [None]
